FAERS Safety Report 13390014 (Version 1)
Quarter: 2017Q1

REPORT INFORMATION
  Report Type: Spontaneous
  Country: US (occurrence: US)
  Receive Date: 20170330
  Receipt Date: 20170330
  Transmission Date: 20170429
  Serious: Yes (Life-Threatening, Other)
  Sender: FDA-Public Use
  Company Number: None

PATIENT
  Sex: Female
  Weight: 112.5 kg

DRUGS (20)
  1. LATANOPROST. [Concomitant]
     Active Substance: LATANOPROST
  2. GABAPENTIN. [Concomitant]
     Active Substance: GABAPENTIN
  3. LISINOPRIL. [Concomitant]
     Active Substance: LISINOPRIL
  4. CHLORTHALIDONE. [Concomitant]
     Active Substance: CHLORTHALIDONE
  5. B-12 COMPLEX [Concomitant]
  6. METOPROLOL. [Concomitant]
     Active Substance: METOPROLOL
  7. COENZYME Q10 [Concomitant]
     Active Substance: UBIDECARENONE
  8. METFORMIN [Concomitant]
     Active Substance: METFORMIN HYDROCHLORIDE
  9. MULTIVITAMIN [Concomitant]
     Active Substance: VITAMINS
  10. WARFARIN SODIUM 3 MG [Suspect]
     Active Substance: WARFARIN SODIUM
     Indication: DEEP VEIN THROMBOSIS
     Dosage: ?          QUANTITY:45 TABLET(S);OTHER FREQUENCY:4.5 MG QD;?
     Route: 048
     Dates: start: 20170327
  11. GEMFIBROZIL. [Concomitant]
     Active Substance: GEMFIBROZIL
  12. LEVOTHYROXINE. [Concomitant]
     Active Substance: LEVOTHYROXINE
  13. LANTUS [Concomitant]
     Active Substance: INSULIN GLARGINE
  14. SERTRALINE [Concomitant]
     Active Substance: SERTRALINE HYDROCHLORIDE
  15. CLONODINE [Concomitant]
  16. CLONAZEPAM. [Concomitant]
     Active Substance: CLONAZEPAM
  17. BUPROPION XL [Concomitant]
     Active Substance: BUPROPION
  18. VITAMIN D [Concomitant]
     Active Substance: CHOLECALCIFEROL
  19. AMLODIPINE BESYLATE. [Concomitant]
     Active Substance: AMLODIPINE BESYLATE
  20. OMEPRAZOLE. [Concomitant]
     Active Substance: OMEPRAZOLE

REACTIONS (4)
  - Drug ineffective [None]
  - Product quality issue [None]
  - International normalised ratio abnormal [None]
  - Product use issue [None]
